FAERS Safety Report 5392846-0 (Version None)
Quarter: 2007Q3

REPORT INFORMATION
  Report Type: 
  Country: None (occurrence: None)
  Receive Date: 20070720
  Receipt Date: 20070709
  Transmission Date: 20080115
  Serious: Yes (Other)
  Sender: FDA-Public Use
  Company Number: US-PFIZER INC-2007056951

PATIENT
  Sex: Male

DRUGS (1)
  1. BEXTRA [Suspect]
     Route: 048
     Dates: start: 20021204, end: 20050404

REACTIONS (2)
  - INFECTION [None]
  - STEVENS-JOHNSON SYNDROME [None]
